FAERS Safety Report 6771255-3 (Version None)
Quarter: 2010Q2

REPORT INFORMATION
  Report Type: 
  Country: None (occurrence: None)
  Receive Date: 20100614
  Receipt Date: 20100601
  Transmission Date: 20101027
  Serious: Yes (Other)
  Sender: FDA-Public Use
  Company Number: 2010AC000460

PATIENT
  Age: 65 Year
  Sex: Male
  Weight: 102.0593 kg

DRUGS (5)
  1. DIGOXIN [Suspect]
     Indication: CARDIAC DISORDER
     Dosage: .25 MG; PO
     Route: 048
     Dates: start: 19800101, end: 20080101
  2. DIGOXIN [Suspect]
     Dates: end: 20100101
  3. COUMADIN [Concomitant]
  4. ASPIRIN [Concomitant]
  5. VITAMIN TAB [Concomitant]

REACTIONS (13)
  - ANXIETY [None]
  - ASTHENIA [None]
  - BACK PAIN [None]
  - CHEST PAIN [None]
  - DYSGEUSIA [None]
  - DYSPNOEA [None]
  - HEART RATE IRREGULAR [None]
  - HYPERHIDROSIS [None]
  - NAUSEA [None]
  - PALLOR [None]
  - PALPITATIONS [None]
  - PRESYNCOPE [None]
  - RASH [None]
